FAERS Safety Report 13536904 (Version 1)
Quarter: 2017Q2

REPORT INFORMATION
  Report Type: Spontaneous
  Country: US (occurrence: US)
  Receive Date: 20170511
  Receipt Date: 20170511
  Transmission Date: 20170830
  Serious: No
  Sender: FDA-Public Use
  Company Number: US-SUN PHARMACEUTICAL INDUSTRIES LTD-2017US-138747

PATIENT
  Age: 21 Year
  Sex: Male

DRUGS (1)
  1. ESZOPICLONE. [Suspect]
     Active Substance: ESZOPICLONE
     Indication: SLEEP DISORDER
     Dosage: UNK
     Route: 065

REACTIONS (3)
  - Product substitution issue [Recovering/Resolving]
  - Palpitations [Recovering/Resolving]
  - Therapeutic response decreased [Unknown]
